FAERS Safety Report 8889044 (Version 2)
Quarter: 2014Q2

REPORT INFORMATION
  Report Type: Spontaneous
  Country: US (occurrence: US)
  Receive Date: 20121106
  Receipt Date: 20130823
  Transmission Date: 20141212
  Serious: Yes (Hospitalization)
  Sender: FDA-Public Use
  Company Number: US-BRISTOL-MYERS SQUIBB COMPANY-17014309

PATIENT
  Age: 63 Year
  Sex: Female

DRUGS (5)
  1. SPRYCEL (CML) TABS 70 MG [Suspect]
     Indication: CHRONIC MYELOID LEUKAEMIA
     Dosage: 100MG
     Route: 048
     Dates: start: 20110718, end: 20120924
  2. METFORMIN HCL [Suspect]
  3. LISINOPRIL [Suspect]
  4. CELEBREX [Suspect]
  5. VICODIN [Suspect]

REACTIONS (1)
  - Pleural effusion [Unknown]
